FAERS Safety Report 8391738-2 (Version None)
Quarter: 2012Q2

REPORT INFORMATION
  Report Type: 
  Country: None (occurrence: None)
  Receive Date: 20120529
  Receipt Date: 20120521
  Transmission Date: 20120825
  Serious: Yes (Other)
  Sender: FDA-Public Use
  Company Number: JP-PFIZER INC-2012083343

PATIENT
  Age: 63 Year
  Sex: Male
  Weight: 68.8 kg

DRUGS (20)
  1. ZYVOX [Suspect]
     Indication: ENDOCARDITIS
     Dosage: 600 MG, 2X/DAY
     Route: 041
     Dates: start: 20111011, end: 20111129
  2. RIFADIN [Suspect]
     Indication: ENDOCARDITIS
     Dosage: 600 MG, 1X/DAY
     Route: 048
     Dates: start: 20111014, end: 20111210
  3. GENTAMICIN SULFATE [Concomitant]
     Indication: ENDOCARDITIS
     Dosage: 60 MG, 2X/DAY
     Route: 041
     Dates: start: 20111009, end: 20111011
  4. WARFARIN [Suspect]
     Indication: ENDOCARDITIS
     Dosage: UNK
     Route: 048
     Dates: start: 20110929, end: 20111210
  5. CELOOP [Concomitant]
     Dosage: UNK
  6. ASPIRIN [Concomitant]
     Dosage: UNK
  7. LASIX [Concomitant]
     Dosage: UNK
  8. CEFAZOLIN SODIUM [Concomitant]
     Dosage: UNK
     Dates: start: 20111020, end: 20111202
  9. VANCOMYCIN [Concomitant]
     Indication: ENDOCARDITIS
     Dosage: 1 G, 2X/DAY
     Route: 041
     Dates: start: 20111009, end: 20111011
  10. MAGNESIUM OXIDE HEAVY [Concomitant]
     Dosage: UNK
     Dates: end: 20111019
  11. ALDACTONE [Concomitant]
     Dosage: UNK
  12. HABEKACIN [Suspect]
     Indication: ENDOCARDITIS
     Dosage: 200 MG, 1X/DAY
     Route: 041
     Dates: start: 20111014, end: 20111111
  13. MIYA BM [Concomitant]
     Dosage: UNK
     Route: 048
     Dates: start: 20111020
  14. RABEPRAZOLE SODIUM [Concomitant]
     Dosage: UNK
  15. GASLON [Concomitant]
     Dosage: UNK
     Dates: start: 20111112
  16. AVAPRO [Concomitant]
     Dosage: UNK
     Dates: start: 20111127
  17. SIGMART [Concomitant]
     Dosage: UNK
     Route: 048
     Dates: end: 20111207
  18. MIYA BM [Concomitant]
     Dosage: UNK
     Route: 048
     Dates: end: 20111019
  19. ISOSORBIDE DINITRATE [Concomitant]
     Dosage: UNK
     Dates: end: 20111207
  20. LENDORMIN [Concomitant]
     Dosage: UNK

REACTIONS (2)
  - RENAL IMPAIRMENT [None]
  - INTERNATIONAL NORMALISED RATIO INCREASED [None]
